FAERS Safety Report 12668966 (Version 3)
Quarter: 2016Q4

REPORT INFORMATION
  Report Type: Report from Study
  Country: US (occurrence: US)
  Receive Date: 20160819
  Receipt Date: 20161010
  Transmission Date: 20170207
  Serious: Yes (Hospitalization, Other)
  Sender: FDA-Public Use
  Company Number: US-GILEAD-2016-0229260

PATIENT
  Age: 18 Year
  Sex: Male

DRUGS (5)
  1. ADCIRCA [Concomitant]
     Active Substance: TADALAFIL
  2. NORVASC [Concomitant]
     Active Substance: AMLODIPINE BESYLATE
  3. EPOPROSTENOL. [Concomitant]
     Active Substance: EPOPROSTENOL
     Route: 042
  4. FLOLAN [Concomitant]
     Active Substance: EPOPROSTENOL SODIUM
  5. AMBRISENTAN [Suspect]
     Active Substance: AMBRISENTAN
     Indication: PRODUCT USED FOR UNKNOWN INDICATION
     Dosage: 10 MG, QD
     Route: 065
     Dates: start: 20150827

REACTIONS (5)
  - Coma [Not Recovered/Not Resolved]
  - Off label use [Recovered/Resolved]
  - Pneumonia [Unknown]
  - Aspiration [Unknown]
  - Road traffic accident [Unknown]

NARRATIVE: CASE EVENT DATE: 20150827
